FAERS Safety Report 7011754-2 (Version None)
Quarter: 2010Q3

REPORT INFORMATION
  Report Type: 
  Country: None (occurrence: None)
  Receive Date: 20100923
  Receipt Date: 20090618
  Transmission Date: 20110219
  Serious: No
  Sender: FDA-Public Use
  Company Number: US-WYE-H09820709

PATIENT
  Age: 63 Year
  Sex: Female

DRUGS (5)
  1. PREMARIN [Suspect]
     Indication: HORMONE REPLACEMENT THERAPY
     Route: 048
  2. CALCIUM CARBONATE/VITAMIN D [Concomitant]
     Indication: MEDICAL DIET
  3. MUCINEX [Concomitant]
     Indication: SINUS CONGESTION
  4. CHROMAGEN [Concomitant]
     Indication: ANAEMIA
  5. ACETYLSALICYLIC ACID [Concomitant]

REACTIONS (6)
  - DEMENTIA [None]
  - DIZZINESS [None]
  - FATIGUE [None]
  - MEMORY IMPAIRMENT [None]
  - SPEECH DISORDER [None]
  - VULVOVAGINAL DRYNESS [None]
